FAERS Safety Report 10655449 (Version 1)
Quarter: 2014Q4

REPORT INFORMATION
  Report Type: Spontaneous
  Country: US (occurrence: US)
  Receive Date: 20141216
  Receipt Date: 20141216
  Transmission Date: 20150529
  Serious: No
  Sender: FDA-Public Use
  Company Number: US-GLAXOSMITHKLINE-US2014016228

PATIENT
  Age: 34 Year
  Sex: Male

DRUGS (2)
  1. NICODERM CQ [Suspect]
     Active Substance: NICOTINE
     Indication: SMOKING CESSATION THERAPY
     Dates: start: 20141101, end: 20141102
  2. NICODERM CQ [Suspect]
     Active Substance: NICOTINE

REACTIONS (1)
  - Application site bruise [Not Recovered/Not Resolved]

NARRATIVE: CASE EVENT DATE: 20141102
